FAERS Safety Report 14260624 (Version 2)
Quarter: 2018Q2

REPORT INFORMATION
  Report Type: Report from Study
  Country: DE (occurrence: DE)
  Receive Date: 20171207
  Receipt Date: 20180605
  Transmission Date: 20180711
  Serious: Yes (Death, Hospitalization)
  Sender: FDA-Public Use
  Company Number: DE-PFIZER INC-2017519628

PATIENT
  Age: 69 Year
  Sex: Female

DRUGS (10)
  1. MABTHERA [Suspect]
     Active Substance: RITUXIMAB
     Indication: RHEUMATOID ARTHRITIS
     Dosage: LAST ADMINISTRATION PRIOR TO 30-AUG-2010 DOSE: 4000 MG
     Route: 042
     Dates: end: 20100830
  2. LANSOPRAZOLE. [Concomitant]
     Active Substance: LANSOPRAZOLE
     Dosage: 30 MG, WEEKLY
  3. LEVOTHYROXINE. [Concomitant]
     Active Substance: LEVOTHYROXINE
     Dosage: UNK
  4. FOLSAN [Concomitant]
     Active Substance: FOLIC ACID
     Dosage: 5 MG, UNK
     Route: 065
     Dates: start: 200809
  5. PLAVIX [Concomitant]
     Active Substance: CLOPIDOGREL BISULFATE
     Dosage: UNK
     Dates: start: 201004
  6. DEKRISTOL [Concomitant]
     Active Substance: CHOLECALCIFEROL
     Dosage: 20000 IU, UNK
  7. METHOTREXATE SODIUM. [Suspect]
     Active Substance: METHOTREXATE SODIUM
     Indication: RHEUMATOID ARTHRITIS
     Dosage: 7.5MG TOTAL WEEKLY DOSE VIA DAILY DOSING
     Route: 048
     Dates: start: 200809
  8. NO SUBJECT DRUG [Suspect]
     Active Substance: UNSPECIFIED INGREDIENT
     Dosage: NO DOSE GIVEN
  9. RASILEZ [Concomitant]
     Active Substance: ALISKIREN
     Dosage: 300 MG, 1X/DAY
     Route: 065
  10. PREDNISOLONE. [Concomitant]
     Active Substance: PREDNISOLONE
     Dosage: UNK

REACTIONS (8)
  - Hypoxia [Fatal]
  - Respiratory failure [Fatal]
  - Skin ulcer [Unknown]
  - Rectocele [Recovered/Resolved]
  - Vomiting [Not Recovered/Not Resolved]
  - Aspiration [Fatal]
  - Intestinal ischaemia [Not Recovered/Not Resolved]
  - Anal prolapse [Recovered/Resolved]

NARRATIVE: CASE EVENT DATE: 20110223
